FAERS Safety Report 8902068 (Version 1)
Quarter: 2012Q4

REPORT INFORMATION
  Report Type: 
  Country: DE (occurrence: CA)
  Receive Date: 20121112
  Receipt Date: 20121112
  Transmission Date: 20130627
  Serious: Yes (Hospitalization)
  Sender: FDA-Public Use
  Company Number: CA-FRI-1000040273

PATIENT
  Age: 70 None
  Sex: Female
  Weight: 66 kg

DRUGS (4)
  1. ROFLUMILAST [Suspect]
     Dosage: 500 mcg
     Route: 048
     Dates: start: 20120901, end: 20120929
  2. IV IG THERAPY [Concomitant]
  3. SYMBICORT [Concomitant]
     Dosage: 200 mcg/6 mcg three times daily
     Dates: start: 1998
  4. SPIRIVA [Concomitant]
     Dosage: 18 mcg
     Dates: start: 2010

REACTIONS (9)
  - Dyspnoea [Recovered/Resolved]
  - Diarrhoea [Recovered/Resolved]
  - Nausea [Recovered/Resolved]
  - Vomiting [Recovered/Resolved]
  - Tremor [Recovered/Resolved]
  - Palpitations [Recovered/Resolved]
  - Abdominal discomfort [Not Recovered/Not Resolved]
  - Malaise [Not Recovered/Not Resolved]
  - Headache [Not Recovered/Not Resolved]
